FAERS Safety Report 7628103-9 (Version None)
Quarter: 2011Q3

REPORT INFORMATION
  Report Type: 
  Country: None (occurrence: None)
  Receive Date: 20110722
  Receipt Date: 20110713
  Transmission Date: 20111222
  Serious: No
  Sender: FDA-Public Use
  Company Number: US-BIOGENIDEC-2011BI026147

PATIENT
  Age: 42 Year
  Sex: Female

DRUGS (2)
  1. MAXALT [Concomitant]
     Indication: MIGRAINE
  2. AVONEX [Suspect]
     Indication: MULTIPLE SCLEROSIS
     Route: 030
     Dates: start: 20110212

REACTIONS (6)
  - WEIGHT INCREASED [None]
  - SENSATION OF HEAVINESS [None]
  - MIGRAINE [None]
  - INFLUENZA LIKE ILLNESS [None]
  - CRYING [None]
  - VOMITING [None]
